FAERS Safety Report 8166177 (Version 6)
Quarter: 2014Q1

REPORT INFORMATION
  Report Type: Spontaneous
  Country: US (occurrence: US)
  Receive Date: 20111003
  Receipt Date: 20140129
  Transmission Date: 20141002
  Serious: Yes (Hospitalization)
  Sender: FDA-Public Use
  Company Number: US-GLAXOSMITHKLINE-B0752210A

PATIENT
  Age: 47 Year
  Sex: Male
  Weight: 112.7 kg

DRUGS (2)
  1. AVANDIA [Suspect]
     Indication: DIABETES MELLITUS
     Dosage: 8MG TWICE PER DAY
     Route: 048
     Dates: start: 2000, end: 20070827
  2. AVANDAMET [Suspect]
     Indication: DIABETES MELLITUS
     Route: 048

REACTIONS (5)
  - Pericardial effusion [Recovering/Resolving]
  - Intracranial aneurysm [Unknown]
  - Cardiomyopathy [Unknown]
  - Cardiac failure congestive [Unknown]
  - Dyspnoea [Unknown]
